FAERS Safety Report 11156769 (Version 1)
Quarter: 2015Q2

REPORT INFORMATION
  Report Type: Spontaneous
  Country: US (occurrence: US)
  Receive Date: 20150602
  Receipt Date: 20150602
  Transmission Date: 20150821
  Serious: No
  Sender: FDA-Public Use
  Company Number: US-GLAXOSMITHKLINE-US2015GSK062976

PATIENT
  Sex: Female

DRUGS (1)
  1. BUPROPION HYDROCHLORIDE. [Suspect]
     Active Substance: BUPROPION HYDROCHLORIDE
     Indication: DEPRESSION

REACTIONS (6)
  - Mood swings [Recovered/Resolved]
  - Drug ineffective [Recovered/Resolved]
  - Hypersomnia [Recovered/Resolved]
  - Apathy [Recovered/Resolved]
  - Fatigue [Recovered/Resolved]
  - Depressed mood [Recovered/Resolved]
